FAERS Safety Report 13054816 (Version 2)
Quarter: 2017Q1

REPORT INFORMATION
  Report Type: Spontaneous
  Country: JP (occurrence: JP)
  Receive Date: 20161222
  Receipt Date: 20170310
  Transmission Date: 20170428
  Serious: No
  Sender: FDA-Public Use
  Company Number: JP-ACTELION-A-CH2016-143980

PATIENT
  Age: 79 Year
  Sex: Male

DRUGS (14)
  1. OPSUMIT [Suspect]
     Active Substance: MACITENTAN
     Indication: PULMONARY ARTERIAL HYPERTENSION
     Dosage: 10 MG, OD
     Route: 048
     Dates: start: 20160905, end: 20160916
  2. FERROUS CITRATE [Concomitant]
     Active Substance: FERROUS CITRATE
  3. MYSLEE [Concomitant]
     Active Substance: ZOLPIDEM TARTRATE
  4. MILLISROL [Concomitant]
  5. DIGOSIN [Concomitant]
     Active Substance: DIGOXIN
  6. MINITRO [Concomitant]
  7. LASIX [Concomitant]
     Active Substance: FUROSEMIDE
  8. ELIQUIS [Concomitant]
     Active Substance: APIXABAN
  9. IMIDAPRIL HYDROCHLORIDE [Concomitant]
     Active Substance: IMIDAPRIL HYDROCHLORIDE
  10. SAMSCA [Concomitant]
     Active Substance: TOLVAPTAN
  11. SPIRONOLACTONE. [Concomitant]
     Active Substance: SPIRONOLACTONE
  12. DEPAS [Concomitant]
     Active Substance: ETIZOLAM
  13. AMLODIPINE [Concomitant]
     Active Substance: AMLODIPINE BESYLATE
  14. PIMOBENDAN [Concomitant]
     Active Substance: PIMOBENDAN

REACTIONS (2)
  - Weight increased [Recovering/Resolving]
  - Oedema [Recovering/Resolving]

NARRATIVE: CASE EVENT DATE: 20160907
